FAERS Safety Report 19908228 (Version 3)
Quarter: 2022Q1

REPORT INFORMATION
  Report Type: Report from Study
  Country: US (occurrence: US)
  Receive Date: 20211001
  Receipt Date: 20220124
  Transmission Date: 20220423
  Serious: Yes (Other)
  Sender: FDA-Public Use
  Company Number: US-BRISTOL-MYERS SQUIBB COMPANY-BMS-2021-100444

PATIENT
  Age: 57 Year
  Sex: Male

DRUGS (1)
  1. APIXABAN [Suspect]
     Active Substance: APIXABAN
     Indication: Deep vein thrombosis
     Dosage: 5 MILLIGRAM, BID
     Route: 048
     Dates: start: 202106

REACTIONS (8)
  - Multi-organ disorder [Unknown]
  - Scrotal dermatitis [Unknown]
  - Genital burning sensation [Unknown]
  - Premature ejaculation [Unknown]
  - Lung disorder [Unknown]
  - Pain in extremity [Unknown]
  - Dysphagia [Unknown]
  - Hypopnoea [Unknown]

NARRATIVE: CASE EVENT DATE: 20210901
